APPROVED DRUG PRODUCT: BANZEL
Active Ingredient: RUFINAMIDE
Strength: 100MG **Federal Register determination that product was not discontinued or withdrawn for safety or effectiveness reasons**
Dosage Form/Route: TABLET;ORAL
Application: N021911 | Product #001
Applicant: EISAI INC
Approved: Nov 14, 2008 | RLD: Yes | RS: No | Type: DISCN